FAERS Safety Report 4874327-3 (Version None)
Quarter: 2006Q1

REPORT INFORMATION
  Report Type: 
  Country: None (occurrence: None)
  Receive Date: 20060106
  Receipt Date: 20051003
  Transmission Date: 20060701
  Serious: Yes (Hospitalization)
  Sender: FDA-Public Use
  Company Number: US-MERCK-0510USA02630

PATIENT
  Age: 62 Year
  Sex: Female
  Weight: 82 kg

DRUGS (2)
  1. VIOXX [Suspect]
     Indication: PAIN MANAGEMENT
     Route: 048
     Dates: start: 20020408, end: 20020525
  2. VIOXX [Suspect]
     Route: 048
     Dates: start: 20000101, end: 20030101

REACTIONS (2)
  - CORONARY ARTERY DISEASE [None]
  - ISCHAEMIC STROKE [None]
